FAERS Safety Report 5545318-4 (Version None)
Quarter: 2007Q4

REPORT INFORMATION
  Report Type: 
  Country: None (occurrence: None)
  Receive Date: 20071205
  Receipt Date: 20071205
  Transmission Date: 20080405
  Serious: Yes (Hospitalization)
  Sender: FDA-Public Use
  Company Number: None

PATIENT
  Age: 84 Year
  Sex: Female

DRUGS (9)
  1. DIGOXIN [Suspect]
     Indication: OEDEMA PERIPHERAL
     Dosage: 0.25MG DAILY PO
     Route: 048
     Dates: start: 20070719, end: 20070817
  2. LISINOPRIL [Suspect]
     Dosage: 40MG DAILY PO
     Route: 048
  3. WARFARIN SODIUM [Concomitant]
  4. ALPRAZOLAM [Concomitant]
  5. AMITRIPTLINE HCL [Concomitant]
  6. DILTIAZEM HCL [Concomitant]
  7. AMBIEN CR [Concomitant]
  8. ASPIRIN [Concomitant]
  9. ACETAMINOPHEN [Concomitant]

REACTIONS (6)
  - BLOOD POTASSIUM INCREASED [None]
  - BRADYCARDIA [None]
  - FALL [None]
  - INTERNATIONAL NORMALISED RATIO INCREASED [None]
  - RENAL FAILURE ACUTE [None]
  - THERAPEUTIC AGENT TOXICITY [None]
